FAERS Safety Report 6159927-5 (Version None)
Quarter: 2009Q2

REPORT INFORMATION
  Report Type: 
  Country: None (occurrence: None)
  Receive Date: 20090415
  Receipt Date: 20090409
  Transmission Date: 20091009
  Serious: Yes (Hospitalization)
  Sender: FDA-Public Use
  Company Number: LTI2009A00107

PATIENT
  Age: 58 Year
  Sex: Female

DRUGS (9)
  1. ACTOS [Suspect]
     Indication: TYPE 2 DIABETES MELLITUS
     Dosage: 30 MG (30 MG, 1 IN 1 D); 15 MG (15 MGK, 1 IN 1 D); ORAL
     Route: 048
     Dates: start: 20081204, end: 20090206
  2. ACTOS [Suspect]
     Indication: TYPE 2 DIABETES MELLITUS
     Dosage: 30 MG (30 MG, 1 IN 1 D); 15 MG (15 MGK, 1 IN 1 D); ORAL
     Route: 048
     Dates: start: 20090206
  3. DIAMICRON (GLICLAZIDE) [Suspect]
     Indication: TYPE 2 DIABETES MELLITUS
     Dosage: 120 MG (30 MG, 4 IN 1 D) ORAL
     Route: 048
     Dates: start: 20081204
  4. GLUCOPHAGE [Suspect]
     Indication: TYPE 2 DIABETES MELLITUS
     Dosage: 3000 MG (1000 MG, 3 IN 1 D) ORAL
     Route: 048
     Dates: start: 20081204
  5. PRETERAX (INDAPAMIDE, PERINDOPRIL ERBUMNE) [Concomitant]
  6. NEBILOX (NEVIVOLOL HYDROCHLORIDE) [Concomitant]
  7. POTASSIUM CHLORIDE [Concomitant]
  8. CETIRIZINE HCL [Concomitant]
  9. ATORVASTATIN CALCIUM [Concomitant]

REACTIONS (3)
  - FIBULA FRACTURE [None]
  - HYPOGLYCAEMIC SEIZURE [None]
  - SWELLING [None]
